FAERS Safety Report 6677068-5 (Version None)
Quarter: 2010Q2

REPORT INFORMATION
  Report Type: 
  Country: None (occurrence: None)
  Receive Date: 20100401
  Receipt Date: 20090713
  Transmission Date: 20101027
  Serious: Yes (Hospitalization)
  Sender: FDA-Public Use
  Company Number: 090721-0000879

PATIENT
  Age: 52 Year
  Sex: Male

DRUGS (4)
  1. INDOCIN [Suspect]
     Indication: ARTHRITIS
  2. VERAPAMIL [Concomitant]
  3. MOTRIN [Concomitant]
  4. VIOXX [Concomitant]

REACTIONS (1)
  - GASTROINTESTINAL HAEMORRHAGE [None]
